FAERS Safety Report 8516653-2 (Version None)
Quarter: 2012Q3

REPORT INFORMATION
  Report Type: 
  Country: None (occurrence: None)
  Receive Date: 20120718
  Receipt Date: 20120712
  Transmission Date: 20120928
  Serious: Yes (Other)
  Sender: FDA-Public Use
  Company Number: CH-US-EMD SERONO, INC.-7147223

PATIENT
  Sex: Male

DRUGS (1)
  1. REBIF [Suspect]
     Indication: MULTIPLE SCLEROSIS
     Route: 058
     Dates: start: 20000101, end: 20120601

REACTIONS (3)
  - INJECTION SITE INDURATION [None]
  - ABSCESS [None]
  - INJECTION SITE ERYTHEMA [None]
